FAERS Safety Report 8858701 (Version 1)
Quarter: 2012Q4

REPORT INFORMATION
  Report Type: 
  Country: US (occurrence: US)
  Receive Date: 20121024
  Receipt Date: 20121024
  Transmission Date: 20130627
  Serious: No
  Sender: FDA-Public Use
  Company Number: US-BAYER-2012-109403

PATIENT
  Sex: Female

DRUGS (1)
  1. MIRENA [Suspect]
     Dosage: 20 mcg/24hr, CONT
     Route: 015
     Dates: start: 201203, end: 20120927

REACTIONS (4)
  - Uterine inflammation [Recovered/Resolved]
  - Gastrointestinal inflammation [Recovered/Resolved]
  - Diarrhoea [Recovered/Resolved]
  - Abdominal pain lower [Recovered/Resolved]
